FAERS Safety Report 15691646 (Version 1)
Quarter: 2018Q4

REPORT INFORMATION
  Report Type: Spontaneous
  Country: US (occurrence: US)
  Receive Date: 20181205
  Receipt Date: 20181205
  Transmission Date: 20190205
  Serious: Yes (Hospitalization)
  Sender: FDA-Public Use
  Company Number: US-BAYER-2015-462244

PATIENT
  Age: 72 Year
  Sex: Male

DRUGS (11)
  1. XARELTO [Suspect]
     Active Substance: RIVAROXABAN
     Indication: THROMBOSIS
  2. PLAVIX [Suspect]
     Active Substance: CLOPIDOGREL BISULFATE
     Indication: THROMBOSIS
  3. XARELTO [Suspect]
     Active Substance: RIVAROXABAN
     Indication: THROMBOEMBOLECTOMY
     Dosage: UNK
     Route: 048
     Dates: start: 20150220, end: 20150304
  4. BAYER LOW DOSE [Suspect]
     Active Substance: ASPIRIN
     Indication: THROMBOSIS
  5. XARELTO [Suspect]
     Active Substance: RIVAROXABAN
     Indication: PERIPHERAL VASCULAR DISORDER
  6. BAYER LOW DOSE [Suspect]
     Active Substance: ASPIRIN
     Indication: THROMBECTOMY
  7. BAYER LOW DOSE [Suspect]
     Active Substance: ASPIRIN
     Indication: THROMBOEMBOLECTOMY
     Dosage: 81 MG, QD
     Route: 048
     Dates: start: 20150220, end: 20150304
  8. PLAVIX [Suspect]
     Active Substance: CLOPIDOGREL BISULFATE
     Indication: THROMBOEMBOLECTOMY
     Dosage: 75 MG, QD
     Route: 048
     Dates: start: 20150220, end: 20150304
  9. DELTASON [Suspect]
     Active Substance: PREDNISONE
     Indication: PEMPHIGOID
     Dosage: 20 MG, QD
     Route: 048
  10. XARELTO [Suspect]
     Active Substance: RIVAROXABAN
     Indication: THROMBECTOMY
  11. PLAVIX [Suspect]
     Active Substance: CLOPIDOGREL BISULFATE
     Indication: THROMBECTOMY

REACTIONS (1)
  - Upper gastrointestinal haemorrhage [Recovered/Resolved]

NARRATIVE: CASE EVENT DATE: 20150303
